APPROVED DRUG PRODUCT: CHILDREN'S CETIRIZINE HYDROCHLORIDE HIVES RELIEF
Active Ingredient: CETIRIZINE HYDROCHLORIDE
Strength: 10MG
Dosage Form/Route: TABLET, CHEWABLE;ORAL
Application: A090142 | Product #004
Applicant: SUN PHARMACEUTICAL INDUSTRIES LTD
Approved: Aug 30, 2011 | RLD: No | RS: No | Type: DISCN